FAERS Safety Report 18661795 (Version 1)
Quarter: 2020Q4

REPORT INFORMATION
  Report Type: Report from Study
  Country: ES (occurrence: ES)
  Receive Date: 20201224
  Receipt Date: 20201224
  Transmission Date: 20210114
  Serious: Yes (Hospitalization)
  Sender: FDA-Public Use
  Company Number: ES-SA-2020SA036626

PATIENT

DRUGS (16)
  1. ISATUXIMAB [Suspect]
     Active Substance: ISATUXIMAB
     Indication: PLASMA CELL MYELOMA
     Dosage: 10 MG/KG, QOW
     Route: 042
     Dates: start: 20200122, end: 20200122
  2. DEXAMETHASONE. [Suspect]
     Active Substance: DEXAMETHASONE
     Indication: PLASMA CELL MYELOMA
     Dosage: 12 MG, QD
     Route: 042
     Dates: start: 20200122, end: 20200122
  3. OMEPRAZOL [OMEPRAZOLE] [Concomitant]
     Active Substance: OMEPRAZOLE
     Dosage: TOTAL DAILY DOSE: 20 MG
     Route: 048
     Dates: start: 20161024
  4. ACICLOVIR [Concomitant]
     Active Substance: ACYCLOVIR
     Dosage: TOTAL DAILY DOSE: 400 MG
     Route: 048
     Dates: start: 20180601
  5. METAMIZOLE [Concomitant]
     Active Substance: METAMIZOLE
     Dosage: TOTAL DAILY DOSE: 1 TABLET
     Route: 048
     Dates: start: 20191002, end: 20200209
  6. ISATUXIMAB [Suspect]
     Active Substance: ISATUXIMAB
     Dosage: 10 MG/KG, QW
     Route: 042
     Dates: start: 20161018, end: 20161018
  7. BORTEZOMIB. [Suspect]
     Active Substance: BORTEZOMIB
     Indication: PLASMA CELL MYELOMA
     Dosage: 1.3 MG/M2, OTHER
     Route: 058
     Dates: start: 20171002, end: 20171002
  8. NEXIUM I.V. [Concomitant]
     Active Substance: ESOMEPRAZOLE SODIUM
     Dosage: TOTAL DAILY DOSE: 20 MG
     Route: 048
     Dates: start: 20190316
  9. CYCLOPHOSPHAMIDE. [Suspect]
     Active Substance: CYCLOPHOSPHAMIDE
     Indication: PLASMA CELL MYELOMA
     Dosage: 300 MG/M2, QW
     Route: 048
     Dates: start: 20170918, end: 20170918
  10. CYMBALTA [Concomitant]
     Active Substance: DULOXETINE HYDROCHLORIDE
     Dosage: TOTAL DAILY DOSE: 60 MG
     Route: 048
     Dates: start: 20190130
  11. CYCLOPHOSPHAMIDE. [Suspect]
     Active Substance: CYCLOPHOSPHAMIDE
     Dosage: 300 MG/M2
     Route: 048
     Dates: start: 20161018, end: 20161018
  12. IRBESARTAN. [Concomitant]
     Active Substance: IRBESARTAN
     Dosage: TOTAL DAILY DOSE: 150 MG
     Route: 048
     Dates: start: 20180521
  13. BORTEZOMIB. [Suspect]
     Active Substance: BORTEZOMIB
     Dosage: 1.3 MG/M2, OTHER (AT D1, D4, D8, D11, D22, D25, D29, D32 FOR CYCLE 1)
     Route: 058
     Dates: start: 20161018, end: 20161018
  14. SUMIAL [Concomitant]
     Active Substance: PROPRANOLOL HYDROCHLORIDE
     Dosage: TOTAL DAILY DOSE:  1 CAPSULE
     Route: 048
     Dates: start: 20181130
  15. OXYBUTYNIN. [Concomitant]
     Active Substance: OXYBUTYNIN CHLORIDE
     Dosage: TOTAL DAILY DOSE: 5 MG
     Route: 048
     Dates: start: 20190426
  16. DEXAMETHASONE. [Suspect]
     Active Substance: DEXAMETHASONE
     Dosage: 20 MG, QD
     Route: 042
     Dates: start: 20161018, end: 20161018

REACTIONS (1)
  - Pneumonia [Recovered/Resolved]

NARRATIVE: CASE EVENT DATE: 20200210
